APPROVED DRUG PRODUCT: ATORVALIQ
Active Ingredient: ATORVASTATIN CALCIUM
Strength: 20MG/5ML
Dosage Form/Route: SUSPENSION;ORAL
Application: N213260 | Product #001
Applicant: CMP DEVELOPMENT LLC
Approved: Feb 1, 2023 | RLD: Yes | RS: Yes | Type: RX

PATENTS:
Patent 11654106 | Expires: Jun 7, 2037
Patent 11654106 | Expires: Jun 7, 2037
Patent 11925704 | Expires: Jun 7, 2037
Patent 12370136 | Expires: Jun 7, 2037
Patent 12168069 | Expires: Jun 7, 2037
Patent 11369567 | Expires: Jun 7, 2037